FAERS Safety Report 20020691 (Version 1)
Quarter: 2021Q4

REPORT INFORMATION
  Report Type: Spontaneous
  Country: JP (occurrence: JP)
  Receive Date: 20211101
  Receipt Date: 20211101
  Transmission Date: 20220303
  Serious: Yes (Other)
  Sender: FDA-Public Use
  Company Number: JP-PFIZER INC-202101393815

PATIENT
  Age: 68 Year
  Sex: Male

DRUGS (6)
  1. METHYLPREDNISOLONE [Suspect]
     Active Substance: METHYLPREDNISOLONE
     Dosage: 1 MG/KG, DAILY
     Route: 048
  2. METHYLPREDNISOLONE [Suspect]
     Active Substance: METHYLPREDNISOLONE
     Dosage: 40 MG
     Route: 048
  3. CYCLOPHOSPHAMIDE [Suspect]
     Active Substance: CYCLOPHOSPHAMIDE
  4. DOXORUBICIN [Suspect]
     Active Substance: DOXORUBICIN
  5. VINCRISTINE [Suspect]
     Active Substance: VINCRISTINE
  6. PREDNISOLONE [Suspect]
     Active Substance: PREDNISOLONE

REACTIONS (2)
  - Impaired healing [Unknown]
  - Device dislocation [Unknown]
